FAERS Safety Report 13606096 (Version 1)
Quarter: 2017Q2

REPORT INFORMATION
  Report Type: Spontaneous
  Country: US (occurrence: US)
  Receive Date: 20170602
  Receipt Date: 20170602
  Transmission Date: 20170830
  Serious: No
  Sender: FDA-Public Use
  Company Number: US-NOVEN PHARMACEUTICALS, INC.-US2016002593

PATIENT

DRUGS (3)
  1. DAYTRANA [Suspect]
     Active Substance: METHYLPHENIDATE
     Dosage: 30 MG, UNKNOWN
     Route: 062
     Dates: start: 2013, end: 2016
  2. LOMEDIA 24 FE [Concomitant]
     Active Substance: ETHINYL ESTRADIOL\NORETHINDRONE ACETATE
     Indication: HORMONE THERAPY
  3. DAYTRANA [Suspect]
     Active Substance: METHYLPHENIDATE
     Indication: ATTENTION DEFICIT/HYPERACTIVITY DISORDER
     Dosage: UNK, UNKNOWN
     Route: 062

REACTIONS (4)
  - Drug dose omission [Not Recovered/Not Resolved]
  - Decreased appetite [Unknown]
  - Wrong technique in product usage process [Not Recovered/Not Resolved]
  - Off label use [Unknown]

NARRATIVE: CASE EVENT DATE: 201606
